FAERS Safety Report 8518256-2 (Version None)
Quarter: 2012Q3

REPORT INFORMATION
  Report Type: 
  Country: None (occurrence: None)
  Receive Date: 20120718
  Receipt Date: 20111207
  Transmission Date: 20120928
  Serious: No
  Sender: FDA-Public Use
  Company Number: US-BRISTOL-MYERS SQUIBB COMPANY-16275380

PATIENT
  Age: 79 Year
  Sex: Female

DRUGS (1)
  1. WARFARIN SODIUM [Suspect]
     Indication: PULMONARY EMBOLISM
     Dosage: 1DF=4.5 MG ONCE DAILY,OTHER DAYS 6 MG ONCE DAILY LATER FIXED WITH 4MG ONCE DAILY
     Dates: start: 20020101

REACTIONS (2)
  - SKIN DISCOLOURATION [None]
  - INTERNATIONAL NORMALISED RATIO INCREASED [None]
